FAERS Safety Report 18523806 (Version 1)
Quarter: 2020Q4

REPORT INFORMATION
  Report Type: Not Available
  Country: None (occurrence: None)
  Receive Date: 20201119
  Receipt Date: 20201119
  Transmission Date: 20210114
  Serious: No
  Sender: FDA-Public Use
  Company Number: US-AKORN-156374

PATIENT
  Age: 66 Year
  Sex: Male

DRUGS (1)
  1. MORPHINE SULFATE SOLUTION [Suspect]
     Active Substance: MORPHINE SULFATE

REACTIONS (3)
  - Constipation [Not Recovered/Not Resolved]
  - Fatigue [Not Recovered/Not Resolved]
  - Abdominal pain [Not Recovered/Not Resolved]
